FAERS Safety Report 12352293 (Version 3)
Quarter: 2016Q4

REPORT INFORMATION
  Report Type: Report from Study
  Country: US (occurrence: US)
  Receive Date: 20160510
  Receipt Date: 20161027
  Transmission Date: 20170207
  Serious: Yes (Other)
  Sender: FDA-Public Use
  Company Number: US-CELGENEUS-USA-2016047825

PATIENT
  Age: 50 Year
  Sex: Male
  Weight: 96.3 kg

DRUGS (5)
  1. RITUXIMAB [Suspect]
     Active Substance: RITUXIMAB
     Indication: B-CELL LYMPHOMA
     Route: 048
     Dates: start: 20141009, end: 20141009
  2. VALTREX [Concomitant]
     Active Substance: VALACYCLOVIR HYDROCHLORIDE
     Indication: PRODUCT USED FOR UNKNOWN INDICATION
     Route: 065
  3. CC-5013 [Suspect]
     Active Substance: LENALIDOMIDE
     Route: 048
     Dates: start: 20160331, end: 20160421
  4. CC-5013 [Suspect]
     Active Substance: LENALIDOMIDE
     Indication: B-CELL LYMPHOMA
     Route: 048
     Dates: start: 20141009, end: 20141030
  5. RITUXIMAB [Suspect]
     Active Substance: RITUXIMAB
     Route: 048
     Dates: start: 20160331, end: 20160331

REACTIONS (1)
  - Adenocarcinoma [Recovered/Resolved]

NARRATIVE: CASE EVENT DATE: 20160415
